FAERS Safety Report 25245091 (Version 1)
Quarter: 2025Q2

REPORT INFORMATION
  Report Type: Spontaneous
  Country: US (occurrence: None)
  Receive Date: 20250425
  Receipt Date: 20250425
  Transmission Date: 20250716
  Serious: Yes (Hospitalization)
  Sender: FDA-CTU
  Company Number: None

PATIENT
  Age: 61 Year
  Sex: Male

DRUGS (6)
  1. AMBRISENTAN [Suspect]
     Active Substance: AMBRISENTAN
     Indication: Pulmonary arterial hypertension
     Dosage: 10MG QD ORAL ?
     Route: 048
     Dates: start: 20241108, end: 20250404
  2. JARDIANCE [Concomitant]
     Active Substance: EMPAGLIFLOZIN
  3. BUMEX [Concomitant]
     Active Substance: BUMETANIDE
  4. GLIPIZIDE [Concomitant]
     Active Substance: GLIPIZIDE
  5. ALLOPURINOL [Concomitant]
     Active Substance: ALLOPURINOL
  6. APIXABAN [Concomitant]
     Active Substance: APIXABAN

REACTIONS (5)
  - Abdominal distension [None]
  - Weight increased [None]
  - Dyspnoea [None]
  - Cough [None]
  - Therapy cessation [None]

NARRATIVE: CASE EVENT DATE: 20250404
